FAERS Safety Report 17711126 (Version 4)
Quarter: 2020Q3

REPORT INFORMATION
  Report Type: Other
  Country: DE (occurrence: DE)
  Receive Date: 20200427
  Receipt Date: 20200929
  Transmission Date: 20201102
  Serious: No
  Sender: FDA-Public Use
  Company Number: DE-ROCHE-2576081

PATIENT
  Age: 62 Year
  Sex: Female
  Weight: 68 kg

DRUGS (17)
  1. PREDNISOLON [Concomitant]
     Active Substance: PREDNISOLONE
     Route: 042
     Dates: start: 20181212, end: 20181212
  2. PROLIA [Concomitant]
     Active Substance: DENOSUMAB
     Indication: OSTEOPOROSIS
     Route: 058
     Dates: start: 20130123
  3. FAMPYRA [Concomitant]
     Active Substance: DALFAMPRIDINE
     Dosage: IMPROVEMENT OF WALKING DISTANCE
     Route: 048
     Dates: start: 20171130
  4. DEKRISTOL [Concomitant]
     Active Substance: CHOLECALCIFEROL
     Indication: VITAMIN D DEFICIENCY
     Route: 048
     Dates: start: 20121212
  5. OCRELIZUMAB. [Suspect]
     Active Substance: OCRELIZUMAB
     Indication: SECONDARY PROGRESSIVE MULTIPLE SCLEROSIS
     Route: 042
     Dates: start: 20181212
  6. PREDNISOLUT [Concomitant]
     Active Substance: PREDNISOLONE
     Indication: PROPHYLAXIS
     Dosage: PROPHYLAXIS OF ADVERSE REACTIONS DURING OCREVUS ADMINISITRATION
     Route: 042
     Dates: start: 20180606, end: 20180606
  7. OCRELIZUMAB. [Suspect]
     Active Substance: OCRELIZUMAB
     Indication: MULTIPLE SCLEROSIS
     Route: 042
     Dates: start: 20180606, end: 20180620
  8. RANITIDINE. [Concomitant]
     Active Substance: RANITIDINE
     Indication: PROPHYLAXIS
     Dosage: PROPHYLAXIS OF ADVERSE REACTIONS DURING OCREVUS ADMINISITRATION
     Route: 048
     Dates: start: 20181211, end: 20181213
  9. RANITIDINE. [Concomitant]
     Active Substance: RANITIDINE
     Route: 048
     Dates: start: 20180605, end: 20180607
  10. AERIUS [Concomitant]
     Route: 048
     Dates: start: 20181211, end: 20181213
  11. SIRDALUD [Concomitant]
     Active Substance: TIZANIDINE
     Indication: MUSCLE SPASTICITY
     Route: 048
     Dates: start: 20141030, end: 201912
  12. VESIKUR [Concomitant]
     Active Substance: SOLIFENACIN SUCCINATE
     Indication: BLADDER DISCOMFORT
     Dosage: BLADDER DISCOMFORT, EXACT START DATE UNKNOWN AS EXTERNALLY PRESCRIBED BY UROLOGISTS
     Route: 048
     Dates: start: 2017
  13. AERIUS [Concomitant]
     Indication: PROPHYLAXIS
     Dosage: PROPHYLAXIS OF ADVERSE REACTIONS DURING OCREVUS ADMINISITRATION
     Route: 048
     Dates: start: 20180605, end: 20180607
  14. SATIVEX [Concomitant]
     Active Substance: NABIXIMOLS
     Indication: MUSCLE SPASTICITY
     Dosage: SPASTICITY; DOSE AND INTERVAL UNKNOWN
     Dates: start: 20141030
  15. RAMIPRIL. [Concomitant]
     Active Substance: RAMIPRIL
     Indication: HYPERTENSION
     Route: 048
     Dates: start: 201907, end: 201908
  16. PREDNISOLON [Concomitant]
     Active Substance: PREDNISOLONE
     Indication: PROPHYLAXIS
     Dosage: PROPHYLAXIS OF ADVERSE REACTIONS DURING OCREVUS ADMINISITRATION
     Route: 042
     Dates: start: 20180620, end: 20180620
  17. FENISTIL [Concomitant]
     Active Substance: DIMETHINDENE
     Indication: PROPHYLAXIS
     Dosage: PROPHYLAXIS OF ADVERSE REACTIONS DURING OCREVUS ADMINISITRATION (PATIENT FORGOT TO TAKE RANITIDINE A
     Route: 042
     Dates: start: 20180620, end: 20180620

REACTIONS (1)
  - Herpes zoster [Unknown]

NARRATIVE: CASE EVENT DATE: 201904
